FAERS Safety Report 4474669-X (Version None)
Quarter: 2004Q4

REPORT INFORMATION
  Report Type: 
  Country: None (occurrence: None)
  Receive Date: 20041012
  Receipt Date: 20041007
  Transmission Date: 20050328
  Serious: Yes (Hospitalization)
  Sender: FDA-Public Use
  Company Number: USA-2004-0017126

PATIENT
  Age: 2 Year
  Sex: Male

DRUGS (2)
  1. SPECTRACEF [Suspect]
     Indication: BALANOPOSTHITIS
     Dosage: 33 MG, DAILY, ORAL
     Route: 048
     Dates: start: 20040923, end: 20040923
  2. BIOFERMIN R (STREPTOCOCCUS FAECALIS) [Concomitant]

REACTIONS (1)
  - ERYTHEMA MULTIFORME [None]
